FAERS Safety Report 13999728 (Version 1)
Quarter: 2017Q3

REPORT INFORMATION
  Report Type: Spontaneous
  Country: US (occurrence: US)
  Receive Date: 20170922
  Receipt Date: 20170922
  Transmission Date: 20171128
  Serious: Yes (Life-Threatening, Other)
  Sender: FDA-Public Use
  Company Number: US-APOTEX-2017AP018404

PATIENT
  Age: 18 Year
  Sex: Female

DRUGS (9)
  1. AZATHIOPRINE. [Suspect]
     Active Substance: AZATHIOPRINE
     Indication: MAST CELL ACTIVATION SYNDROME
     Route: 065
  2. FAMOTIDINE TABLETS USP [Suspect]
     Active Substance: FAMOTIDINE
     Indication: MAST CELL ACTIVATION SYNDROME
     Dosage: 80 MG, DAILY
     Route: 065
  3. DIPHENHYDRAMINE HCL [Suspect]
     Active Substance: DIPHENHYDRAMINE HYDROCHLORIDE
     Indication: MAST CELL ACTIVATION SYNDROME
     Dosage: 300 MG, DAILY
     Route: 065
  4. CYCLOSPORINE. [Suspect]
     Active Substance: CYCLOSPORINE
     Indication: MAST CELL ACTIVATION SYNDROME
     Route: 065
  5. LORATADINE. [Suspect]
     Active Substance: LORATADINE
     Indication: MAST CELL ACTIVATION SYNDROME
     Dosage: 10 MG, DAILY
     Route: 065
  6. OMALIZUMAB. [Suspect]
     Active Substance: OMALIZUMAB
     Indication: MAST CELL ACTIVATION SYNDROME
     Dosage: 300 MG, UNK
     Route: 065
  7. CETIRIZINE [Suspect]
     Active Substance: CETIRIZINE HYDROCHLORIDE
     Indication: MAST CELL ACTIVATION SYNDROME
     Dosage: 10 MG, DAILY
     Route: 065
  8. FEXOFENADINE [Suspect]
     Active Substance: FEXOFENADINE\FEXOFENADINE HYDROCHLORIDE
     Indication: MAST CELL ACTIVATION SYNDROME
     Dosage: 120 MG, DAILY
     Route: 065
  9. METHOTREXATE. [Suspect]
     Active Substance: METHOTREXATE
     Indication: MAST CELL ACTIVATION SYNDROME
     Route: 065

REACTIONS (1)
  - Drug ineffective [Unknown]
